FAERS Safety Report 7415146-3 (Version None)
Quarter: 2011Q2

REPORT INFORMATION
  Report Type: 
  Country: None (occurrence: None)
  Receive Date: 20110414
  Receipt Date: 20110405
  Transmission Date: 20111010
  Serious: No
  Sender: FDA-Public Use
  Company Number: PHHY2011US05574

PATIENT
  Sex: Male

DRUGS (8)
  1. TASIGNA [Suspect]
     Indication: CHRONIC MYELOID LEUKAEMIA
  2. METOPROLOL TARTRATE [Concomitant]
     Indication: HYPERTENSION
  3. KLONOPIN [Concomitant]
     Indication: BIPOLAR DISORDER
  4. ALLOPURINOL [Concomitant]
     Indication: BIPOLAR DISORDER
  5. GLEEVEC [Suspect]
     Indication: CHRONIC MYELOID LEUKAEMIA
     Dosage: 600 MG
     Route: 048
     Dates: start: 20100307, end: 20100526
  6. LITHIUM [Concomitant]
     Indication: BIPOLAR DISORDER
  7. GLEEVEC [Suspect]
     Dosage: 400 MG, QD
     Route: 048
     Dates: start: 20100527, end: 20110121
  8. WELLBUTRIN [Concomitant]
     Indication: BIPOLAR DISORDER

REACTIONS (5)
  - DIARRHOEA [None]
  - NAUSEA [None]
  - ABDOMINAL DISTENSION [None]
  - FATIGUE [None]
  - ASTHENIA [None]
